FAERS Safety Report 14474581 (Version 1)
Quarter: 2018Q1

REPORT INFORMATION
  Report Type: Spontaneous
  Country: US (occurrence: US)
  Receive Date: 20180131
  Receipt Date: 20180131
  Transmission Date: 20180509
  Serious: Yes (Other)
  Sender: FDA-Public Use
  Company Number: None

PATIENT
  Age: 38 Year
  Sex: Female

DRUGS (1)
  1. CAPECITABINE. [Suspect]
     Active Substance: CAPECITABINE
     Indication: COLON CANCER
     Dosage: 2000MG TWICE DAILY ON DAYS 1-14 EVERY 28 DAY BY MOUTH
     Route: 048
     Dates: start: 20180118

REACTIONS (4)
  - Parosmia [None]
  - Diarrhoea [None]
  - Product substitution issue [None]
  - Dysgeusia [None]

NARRATIVE: CASE EVENT DATE: 20180118
